FAERS Safety Report 19459840 (Version 1)
Quarter: 2021Q2

REPORT INFORMATION
  Report Type: Other
  Country: FR (occurrence: FR)
  Receive Date: 20210625
  Receipt Date: 20210625
  Transmission Date: 20210717
  Serious: Yes (Other)
  Sender: FDA-Public Use
  Company Number: FR-CELLTRION INC.-2021FR008315

PATIENT

DRUGS (1)
  1. RITUXIMAB (UNKNOWN) [Suspect]
     Active Substance: RITUXIMAB
     Indication: NEUROMYELITIS OPTICA SPECTRUM DISORDER
     Dosage: UNK
     Route: 065
     Dates: start: 202003

REACTIONS (4)
  - Lung disorder [Unknown]
  - Off label use [Unknown]
  - Neuromyelitis optica spectrum disorder [Unknown]
  - Sepsis [Unknown]

NARRATIVE: CASE EVENT DATE: 202012
